FAERS Safety Report 20589251 (Version 1)
Quarter: 2022Q1

REPORT INFORMATION
  Report Type: Spontaneous
  Country: US (occurrence: None)
  Receive Date: 20220312
  Receipt Date: 20220312
  Transmission Date: 20220423
  Serious: Yes (Disabling)
  Sender: FDA-Public Use
  Company Number: None

PATIENT
  Age: 72 Year
  Sex: Female
  Weight: 63 kg

DRUGS (1)
  1. SOTROVIMAB [Suspect]
     Active Substance: SOTROVIMAB
     Indication: COVID-19
     Route: 042
     Dates: start: 20220202, end: 20220202

REACTIONS (4)
  - Pain in extremity [None]
  - Pruritus [None]
  - Muscle twitching [None]
  - Sleep disorder [None]

NARRATIVE: CASE EVENT DATE: 20220202
